FAERS Safety Report 10235676 (Version 1)
Quarter: 2014Q2

REPORT INFORMATION
  Report Type: Spontaneous
  Country: US (occurrence: None)
  Receive Date: 20140612
  Receipt Date: 20140612
  Transmission Date: 20141212
  Serious: Yes (Disabling)
  Sender: FDA-Public Use
  Company Number: None

PATIENT
  Age: 54 Year
  Sex: Female
  Weight: 104.33 kg

DRUGS (2)
  1. GABAPENTIN [Suspect]
     Indication: PARAESTHESIA
     Route: 048
     Dates: start: 20140602, end: 20140605
  2. GABAPENTIN [Suspect]
     Indication: NEURALGIA
     Route: 048
     Dates: start: 20140602, end: 20140605

REACTIONS (3)
  - Depression [None]
  - Emotional distress [None]
  - Crying [None]
